FAERS Safety Report 6452945-9 (Version None)
Quarter: 2009Q4

REPORT INFORMATION
  Report Type: 
  Country: None (occurrence: None)
  Receive Date: 20091117
  Receipt Date: 20091109
  Transmission Date: 20100525
  Serious: Yes (Death)
  Sender: FDA-Public Use
  Company Number: 2009US003442

PATIENT
  Age: 78 Year
  Sex: Male

DRUGS (19)
  1. AMBISOME [Suspect]
     Indication: PULMONARY MYCOSIS
     Dosage: 100 MG, UID/QD, IV NOS
     Route: 042
     Dates: start: 20090727, end: 20090807
  2. DAIO-KANZO-TO (GLYCYRRHIZA GLABRA, RHEUM PALMATUM) [Concomitant]
  3. LEVOTHYROXINE SODIUM [Concomitant]
  4. ASPARA K (ASPARTATE POTASSIUM) [Concomitant]
  5. MINERIC (POTASSIUM IODIDE, COPPER SULFATE, FERRIC CHLORIDE, ZINC SULFA [Concomitant]
  6. TATHION (GLUTATHIONE) [Concomitant]
  7. KIDMIN (AMINO ACIDS NOS) [Concomitant]
  8. HUMAN SERUM ALBUMIN (ALBUMIN) [Concomitant]
  9. PREDOPA (DOPAMINE HYDROCHLORIDE) [Concomitant]
  10. HOCHUUEKKITOU (HERBAL EXTRACT NOS) [Concomitant]
  11. TIENAM (IMIPENEM, CILASTATIN SODIUM) [Concomitant]
  12. DIGILANOGEN C (DESLANOSIDE) [Concomitant]
  13. VERAPAMIL HYDROCHLORIDE [Concomitant]
  14. PROSTARMON F (DINOPROST) [Concomitant]
  15. RED BLOOD CELLS [Concomitant]
  16. HYDROCORTISONE SODIUM SUCCINATE [Concomitant]
  17. PRIMPERAN TAB [Concomitant]
  18. GEBEN (SULFADIAZEIN SILVER) [Concomitant]
  19. GASMOTIN (MOSAPRIDE CITRATE) [Concomitant]

REACTIONS (2)
  - RENAL FAILURE ACUTE [None]
  - SHOCK [None]
